FAERS Safety Report 6645349-7 (Version None)
Quarter: 2010Q1

REPORT INFORMATION
  Report Type: 
  Country: None (occurrence: None)
  Receive Date: 20100322
  Receipt Date: 20100312
  Transmission Date: 20100710
  Serious: Yes (Death, Hospitalization, Other)
  Sender: FDA-Public Use
  Company Number: US-AMGEN-US361705

PATIENT
  Sex: Male
  Weight: 86.3 kg

DRUGS (2)
  1. NPLATE [Suspect]
     Indication: IDIOPATHIC THROMBOCYTOPENIC PURPURA
     Dates: start: 20081119, end: 20090831
  2. VITAMIN B-12 [Concomitant]

REACTIONS (7)
  - ANAEMIA [None]
  - ANISOCYTOSIS [None]
  - ASTHENIA [None]
  - CEREBROVASCULAR ACCIDENT [None]
  - DEATH [None]
  - HYPERKALAEMIA [None]
  - THROMBOCYTOPENIA [None]
